FAERS Safety Report 4562940-2 (Version None)
Quarter: 2005Q1

REPORT INFORMATION
  Report Type: 
  Country: None (occurrence: None)
  Receive Date: 20050121
  Receipt Date: 20050107
  Transmission Date: 20050727
  Serious: Yes (Hospitalization)
  Sender: FDA-Public Use
  Company Number: 2005014705

PATIENT
  Age: 83 Year
  Sex: Male

DRUGS (5)
  1. CELECOXIB                        (CELECOXIB) [Suspect]
     Indication: SPINAL COLUMN STENOSIS
     Dosage: 200 MG (200 MG, 1 IN 1 D), ORAL
     Route: 048
     Dates: start: 20041211, end: 20041214
  2. BENDROFLUMETHIAZIDE                  (BENDROFLUMETHIAZIDE) [Concomitant]
  3. ENALAPRIL MALEATE [Concomitant]
  4. DIHYDROCODEINE                     (DIHYDROCODEINE) [Concomitant]
  5. ACETAMINOPHEN [Concomitant]

REACTIONS (2)
  - ABDOMINAL PAIN [None]
  - HAEMATEMESIS [None]
